FAERS Safety Report 12875102 (Version 3)
Quarter: 2017Q2

REPORT INFORMATION
  Report Type: Spontaneous
  Country: US (occurrence: US)
  Receive Date: 20161023
  Receipt Date: 20170512
  Transmission Date: 20170830
  Serious: Yes (Hospitalization)
  Sender: FDA-Public Use
  Company Number: US-ROCHE-1845256

PATIENT
  Sex: Female

DRUGS (6)
  1. ESBRIET [Suspect]
     Active Substance: PIRFENIDONE
     Indication: IDIOPATHIC PULMONARY FIBROSIS
     Route: 048
     Dates: start: 20160831
  2. SYNTHROID [Concomitant]
     Active Substance: LEVOTHYROXINE SODIUM
  3. OMEPRAZOLE. [Concomitant]
     Active Substance: OMEPRAZOLE
  4. ESBRIET [Suspect]
     Active Substance: PIRFENIDONE
     Route: 048
     Dates: start: 20161020
  5. FORTEO [Concomitant]
     Active Substance: TERIPARATIDE
  6. ESBRIET [Suspect]
     Active Substance: PIRFENIDONE
     Dosage: 5 CAPSULES
     Route: 048

REACTIONS (4)
  - Treatment noncompliance [Unknown]
  - Somnolence [Unknown]
  - Pneumonia [Recovered/Resolved]
  - Drug intolerance [Unknown]
